FAERS Safety Report 22156277 (Version 1)
Quarter: 2023Q1

REPORT INFORMATION
  Report Type: Spontaneous
  Country: US (occurrence: US)
  Receive Date: 20230330
  Receipt Date: 20230330
  Transmission Date: 20230417
  Serious: No
  Sender: FDA-Public Use
  Company Number: US-SA-2023SA096420

PATIENT
  Age: 61 Year
  Sex: Female

DRUGS (2)
  1. DUPIXENT [Suspect]
     Active Substance: DUPILUMAB
     Indication: Asthma
     Dosage: UNK
     Route: 058
     Dates: start: 20230209
  2. DUPIXENT [Suspect]
     Active Substance: DUPILUMAB
     Indication: Sinusitis

REACTIONS (2)
  - Injection site pain [Recovered/Resolved]
  - Product use in unapproved indication [Unknown]

NARRATIVE: CASE EVENT DATE: 20230209
